FAERS Safety Report 4814438-1 (Version None)
Quarter: 2005Q4

REPORT INFORMATION
  Report Type: 
  Country: None (occurrence: None)
  Receive Date: 20051027
  Receipt Date: 20051027
  Transmission Date: 20060501
  Serious: No
  Sender: FDA-Public Use
  Company Number: None

PATIENT
  Age: 60 Year
  Sex: Female
  Weight: 118.9 kg

DRUGS (19)
  1. CELEXA [Suspect]
     Indication: DEPRESSION
     Dosage: 20MG DAILY PO
     Route: 048
     Dates: start: 20050713, end: 20050718
  2. ARAVA [Concomitant]
  3. THEOPHYLLINE [Concomitant]
  4. CARDIZEM CD [Concomitant]
  5. LEVALBUTEROL [Concomitant]
  6. IPRATROPIUM BROMIDE [Concomitant]
  7. SPIRIVA [Concomitant]
  8. BUDESONIDE [Concomitant]
  9. PREDNISONE [Concomitant]
  10. ACTONEL [Concomitant]
  11. AMIKACIN [Concomitant]
  12. AZTREONAM [Concomitant]
  13. ENOXAPARIN SODIUM [Concomitant]
  14. FLUCONAZOLE [Concomitant]
  15. OXYCONTIN [Concomitant]
  16. MULTI-VITAMINS [Concomitant]
  17. COMPAZINE [Concomitant]
  18. PANTOPRAZOLE [Concomitant]
  19. ZOLPIDEM [Concomitant]

REACTIONS (2)
  - BLOOD SODIUM DECREASED [None]
  - INAPPROPRIATE ANTIDIURETIC HORMONE SECRETION [None]
